FAERS Safety Report 25534781 (Version 1)
Quarter: 2025Q3

REPORT INFORMATION
  Report Type: Spontaneous
  Country: US (occurrence: US)
  Receive Date: 20250709
  Receipt Date: 20250709
  Transmission Date: 20251021
  Serious: Yes (Other)
  Sender: PFIZER
  Company Number: US-PFIZER INC-202500137306

PATIENT
  Age: 46 Year
  Sex: Female

DRUGS (1)
  1. VELSIPITY [Suspect]
     Active Substance: ETRASIMOD ARGININE
     Dosage: TAKE 1 TABLET (2 MG TOTAL) BY MOUTH DAILY
     Route: 048

REACTIONS (3)
  - Immunodeficiency [Unknown]
  - Thrombocytosis [Unknown]
  - Iron deficiency [Unknown]
